FAERS Safety Report 25715973 (Version 1)
Quarter: 2025Q3

REPORT INFORMATION
  Report Type: Spontaneous
  Country: US (occurrence: None)
  Receive Date: 20250821
  Receipt Date: 20250821
  Transmission Date: 20251020
  Serious: No
  Sender: FDA-CTU
  Company Number: None

PATIENT
  Age: 2 Year
  Sex: Male
  Weight: 13.95 kg

DRUGS (1)
  1. OLUMIANT [Suspect]
     Active Substance: BARICITINIB
     Indication: Autoinflammatory disease
     Dosage: FREQUENCY : DAILY;?
     Route: 048

REACTIONS (1)
  - Off label use [None]
